FAERS Safety Report 8191373-5 (Version None)
Quarter: 2012Q1

REPORT INFORMATION
  Report Type: 
  Country: None (occurrence: None)
  Receive Date: 20120307
  Receipt Date: 20120301
  Transmission Date: 20120608
  Serious: Yes (Disabling, Other)
  Sender: FDA-Public Use
  Company Number: DE-ALLERGAN-1104965US

PATIENT
  Age: 82 Year
  Sex: Female

DRUGS (1)
  1. OZURDEX [Suspect]
     Indication: THROMBOSIS
     Dosage: UNK
     Route: 031
     Dates: start: 20101115, end: 20101115

REACTIONS (4)
  - BLINDNESS [None]
  - HYPHAEMA [None]
  - GLAUCOMA [None]
  - INTRAOCULAR PRESSURE INCREASED [None]
